FAERS Safety Report 22096535 (Version 2)
Quarter: 2023Q2

REPORT INFORMATION
  Report Type: Spontaneous
  Country: US (occurrence: US)
  Receive Date: 20230315
  Receipt Date: 20230405
  Transmission Date: 20230721
  Serious: No
  Sender: FDA-Public Use
  Company Number: US-AMGEN-USASP2023041600

PATIENT
  Age: 75 Year
  Sex: Female

DRUGS (2)
  1. REPATHA [Suspect]
     Active Substance: EVOLOCUMAB
     Indication: Cardiac disorder
     Dosage: 420 MILLIGRAM
     Route: 065
  2. REPATHA [Suspect]
     Active Substance: EVOLOCUMAB
     Indication: Blood cholesterol increased

REACTIONS (4)
  - Device use error [Unknown]
  - Accidental exposure to product [Unknown]
  - Incorrect dose administered by device [Unknown]
  - Injection site erythema [Unknown]

NARRATIVE: CASE EVENT DATE: 20230307
